FAERS Safety Report 9988227 (Version 1)
Quarter: 2014Q1

REPORT INFORMATION
  Report Type: Spontaneous
  Country: US (occurrence: US)
  Receive Date: 20140309
  Receipt Date: 20140309
  Transmission Date: 20141002
  Serious: No
  Sender: FDA-Public Use
  Company Number: US-009507513-1402USA010313

PATIENT
  Age: 56 Year
  Sex: Female

DRUGS (5)
  1. PEGINTRON [Suspect]
     Indication: HEPATITIS C
     Dosage: 0.5 ML, QW
     Dates: start: 20140207
  2. REBETOL [Suspect]
     Indication: HEPATITIS C
     Dosage: 3 IN AM 2 IN PM, DAILY
     Route: 048
     Dates: start: 20140207
  3. SOVALDI [Concomitant]
     Dosage: 1 DAILY
  4. BENAZEPRIL HYDROCHLORIDE [Concomitant]
     Dosage: 1 DAILY AS NEEDED
  5. IBUPROFEN [Concomitant]
     Dosage: 1 TO 2 EVERY 6 HOURS PRN

REACTIONS (4)
  - Tremor [Unknown]
  - Insomnia [Recovered/Resolved]
  - Fatigue [Unknown]
  - Pyrexia [Recovering/Resolving]
